FAERS Safety Report 5924961-4 (Version None)
Quarter: 2008Q4

REPORT INFORMATION
  Report Type: 
  Country: None (occurrence: None)
  Receive Date: 20081021
  Receipt Date: 20081016
  Transmission Date: 20090506
  Serious: Yes (Other)
  Sender: FDA-Public Use
  Company Number: JP-BRISTOL-MYERS SQUIBB COMPANY-14375042

PATIENT
  Age: 40 Year
  Sex: Male

DRUGS (1)
  1. BARACLUDE [Suspect]
     Indication: HEPATITIS B
     Dosage: 0.5MG, 1/1DAY.15NOV06-21AUG07,280DAYS. 0.5MG PER 2DAYS. 22AUG07 TO UNKNOWN
     Route: 048
     Dates: start: 20061115

REACTIONS (2)
  - CLUSTER HEADACHE [None]
  - LUNG NEOPLASM MALIGNANT [None]
